FAERS Safety Report 7814010-5 (Version None)
Quarter: 2011Q4

REPORT INFORMATION
  Report Type: 
  Country: None (occurrence: None)
  Receive Date: 20111014
  Receipt Date: 20111004
  Transmission Date: 20120403
  Serious: Yes (Death, Life-Threatening, Hospitalization, Other)
  Sender: FDA-Public Use
  Company Number: US-JNJFOC-20051201806

PATIENT
  Sex: Male
  Weight: 44.3 kg

DRUGS (8)
  1. REMICADE [Suspect]
     Indication: CROHN'S DISEASE
     Route: 042
     Dates: start: 20020401
  2. MERCAPTOPURINE [Concomitant]
     Indication: CROHN'S DISEASE
  3. CIPROFLOXACIN [Concomitant]
     Dates: start: 20051121, end: 20051128
  4. IMURAN [Concomitant]
     Indication: CROHN'S DISEASE
     Dates: start: 20000101
  5. REMICADE [Suspect]
     Route: 042
     Dates: start: 20001201
  6. PENTASA [Concomitant]
     Dates: start: 20000101
  7. REMICADE [Suspect]
     Route: 042
     Dates: start: 20051003
  8. REMICADE [Suspect]
     Route: 042
     Dates: start: 20030205

REACTIONS (1)
  - HEPATOSPLENIC T-CELL LYMPHOMA [None]
